FAERS Safety Report 17014273 (Version 1)
Quarter: 2019Q4

REPORT INFORMATION
  Report Type: Spontaneous
  Country: US (occurrence: US)
  Receive Date: 20191111
  Receipt Date: 20191111
  Transmission Date: 20200122
  Serious: No
  Sender: FDA-Public Use
  Company Number: US-TEVA-2019-US-1133893

PATIENT
  Sex: Female

DRUGS (1)
  1. FAMOTIDINE TABLETS USP [Suspect]
     Active Substance: FAMOTIDINE
     Indication: GASTROOESOPHAGEAL REFLUX DISEASE
     Dosage: 40 MG
     Route: 065
     Dates: start: 2019

REACTIONS (4)
  - Nasal congestion [Unknown]
  - Dizziness [Unknown]
  - Sinusitis [Unknown]
  - Headache [Unknown]
